FAERS Safety Report 7226635-9 (Version None)
Quarter: 2011Q1

REPORT INFORMATION
  Report Type: 
  Country: None (occurrence: None)
  Receive Date: 20110114
  Receipt Date: 20110108
  Transmission Date: 20110831
  Serious: Yes (Other)
  Sender: FDA-Public Use
  Company Number: IT-JNJFOC-20110102743

PATIENT
  Age: 39 Year
  Sex: Female

DRUGS (4)
  1. RISPERDAL [Suspect]
     Indication: ILL-DEFINED DISORDER
     Route: 048
  2. EN [Suspect]
     Indication: ILL-DEFINED DISORDER
     Route: 048
  3. BROMAZEPAM [Suspect]
     Indication: ILL-DEFINED DISORDER
     Route: 048
  4. BIOCHETASI [Suspect]
     Indication: ILL-DEFINED DISORDER
     Route: 048

REACTIONS (3)
  - SELF INJURIOUS BEHAVIOUR [None]
  - MYDRIASIS [None]
  - MULTIPLE DRUG OVERDOSE INTENTIONAL [None]
